FAERS Safety Report 5484631-6 (Version None)
Quarter: 2007Q4

REPORT INFORMATION
  Report Type: 
  Country: None (occurrence: None)
  Receive Date: 20071010
  Receipt Date: 20070925
  Transmission Date: 20080405
  Serious: Yes (Hospitalization, Other)
  Sender: FDA-Public Use
  Company Number: 2007US002324

PATIENT
  Age: 34 Year
  Sex: Male

DRUGS (19)
  1. PROGRAF [Suspect]
     Dosage: 1 MG, BID, ORAL; 2 MG, BID, ORAL
     Route: 048
     Dates: start: 20051207, end: 20051208
  2. PROGRAF [Suspect]
     Dosage: 1 MG, BID, ORAL; 2 MG, BID, ORAL
     Route: 048
     Dates: start: 20051208, end: 20051209
  3. MYCOPHENOLATE MOFETIL [Suspect]
     Indication: PROPHYLAXIS
     Dosage: 1000 MG, BID, ORAL
     Route: 048
     Dates: start: 20050712, end: 20051209
  4. METHYLPREDNISOLONE [Suspect]
     Indication: PROPHYLAXIS
     Dosage: 120 MG, IV NOS
     Route: 042
     Dates: start: 20051206
  5. BACTRIM (TRIMETHOPRIM) [Concomitant]
  6. FAMOTIDINE [Concomitant]
  7. DOCUSATE SODIUM (DOCUSATE SODIUM) [Concomitant]
  8. GANCICLOVIR [Concomitant]
  9. FLUCONAZOLE [Concomitant]
  10. METOPROLOL TARTRATE [Concomitant]
  11. NACL (SODIUM CHLORIDE) [Concomitant]
  12. TYLENOL W/ CODEINE NO. 3 [Concomitant]
  13. DILAUDID [Concomitant]
  14. SIMULECT [Concomitant]
  15. VANCOMYCIN HYDROCHLORIDE [Concomitant]
  16. CIPROFLOXACIN [Concomitant]
  17. SOLUMEDROL  OR PLACEBO [Concomitant]
  18. HYDRALAZINE (HYDRALAZINE HYDROCHLORIDE) [Concomitant]
  19. RENAGEL [Concomitant]

REACTIONS (4)
  - HAEMODIALYSIS [None]
  - HAEMOGLOBIN DECREASED [None]
  - POST PROCEDURAL COMPLICATION [None]
  - RENAL VEIN THROMBOSIS [None]
